FAERS Safety Report 7867992-X (Version None)
Quarter: 2011Q4

REPORT INFORMATION
  Report Type: 
  Country: None (occurrence: None)
  Receive Date: 20111028
  Receipt Date: 20111020
  Transmission Date: 20120403
  Serious: Yes (Hospitalization, Other)
  Sender: FDA-Public Use
  Company Number: PHHY2011DK94897

PATIENT
  Age: 27 Year
  Sex: Female

DRUGS (4)
  1. RISPERIDONE [Suspect]
     Dosage: 6 MG, UNK
  2. RISPERIDONE [Suspect]
     Indication: PSYCHOTIC DISORDER
     Dosage: 4 MG, UNK
  3. CITALOPRAM HYDROBROMIDE [Suspect]
     Indication: PSYCHOTIC DISORDER
     Dosage: 20 MG, UNK
  4. CITALOPRAM HYDROBROMIDE [Suspect]
     Dosage: 40 MG, DAILY

REACTIONS (12)
  - DEPRESSED MOOD [None]
  - ANHEDONIA [None]
  - STRESS [None]
  - SOCIAL PROBLEM [None]
  - PELVIC PAIN [None]
  - SUICIDAL IDEATION [None]
  - MOBILITY DECREASED [None]
  - MATERNAL EXPOSURE DURING PREGNANCY [None]
  - HALLUCINATION, AUDITORY [None]
  - THINKING ABNORMAL [None]
  - DECREASED INTEREST [None]
  - FATIGUE [None]
